FAERS Safety Report 4533708-8 (Version None)
Quarter: 2004Q4

REPORT INFORMATION
  Report Type: 
  Country: None (occurrence: None)
  Receive Date: 20041221
  Receipt Date: 20041216
  Transmission Date: 20050328
  Serious: Yes (Death)
  Sender: FDA-Public Use
  Company Number: US-GLAXOSMITHKLINE-A0538096A

PATIENT
  Sex: Male

DRUGS (1)
  1. PAXIL [Suspect]
     Indication: DRUG USE FOR UNKNOWN INDICATION
     Dates: start: 20020603

REACTIONS (7)
  - AGITATION [None]
  - ANXIETY [None]
  - COMPLETED SUICIDE [None]
  - CONFUSIONAL STATE [None]
  - DISABILITY [None]
  - DISTURBANCE IN ATTENTION [None]
  - SUICIDAL IDEATION [None]
